FAERS Safety Report 17760689 (Version 1)
Quarter: 2020Q2

REPORT INFORMATION
  Report Type: Spontaneous
  Country: US (occurrence: US)
  Receive Date: 20200507
  Receipt Date: 20200507
  Transmission Date: 20200714
  Serious: Yes (Hospitalization)
  Sender: FDA-Public Use
  Company Number: None

PATIENT
  Age: 57 Year
  Sex: Male

DRUGS (2)
  1. CAPECITABINE 500MG TAB [Suspect]
     Active Substance: CAPECITABINE
     Indication: CARCINOID TUMOUR OF THE GASTROINTESTINAL TRACT
     Dosage: ?          OTHER ROUTE:PO D1-14OF28D CYCLE?
     Dates: start: 20200215
  2. TEMOZOLOMIDE 100MG CAP [Suspect]
     Active Substance: TEMOZOLOMIDE
     Dosage: ?          OTHER ROUTE:POD10-14OF28OCYCLE?
     Dates: start: 20200213

REACTIONS (2)
  - Therapy interrupted [None]
  - Intestinal obstruction [None]

NARRATIVE: CASE EVENT DATE: 20200425
